FAERS Safety Report 25882156 (Version 1)
Quarter: 2025Q4

REPORT INFORMATION
  Report Type: Spontaneous
  Country: US (occurrence: US)
  Receive Date: 20251006
  Receipt Date: 20251006
  Transmission Date: 20260117
  Serious: No
  Sender: ASTELLAS
  Company Number: US-ASTELLAS-2025-AER-052619

PATIENT
  Age: 85 Year
  Sex: Male

DRUGS (3)
  1. XTANDI [Suspect]
     Active Substance: ENZALUTAMIDE
     Indication: Product used for unknown indication
     Route: 050
  2. ORGOVYX [Suspect]
     Active Substance: RELUGOLIX
     Indication: Prostate cancer
     Dosage: LOADING DOSE
     Route: 048
  3. ORGOVYX [Suspect]
     Active Substance: RELUGOLIX
     Route: 048
     Dates: start: 20240525

REACTIONS (6)
  - Eye injury [Recovering/Resolving]
  - Eye swelling [Recovering/Resolving]
  - Eye haemorrhage [Recovering/Resolving]
  - Fall [Unknown]
  - Ear disorder [Unknown]
  - Nasopharyngitis [Unknown]
